FAERS Safety Report 18933486 (Version 1)
Quarter: 2021Q1

REPORT INFORMATION
  Report Type: Report from Study
  Country: MX (occurrence: MX)
  Receive Date: 20210224
  Receipt Date: 20210224
  Transmission Date: 20210420
  Serious: Yes (Other)
  Sender: FDA-Public Use
  Company Number: NVSC2021MX039885

PATIENT
  Sex: Male

DRUGS (1)
  1. TASIGNA [Suspect]
     Active Substance: NILOTINIB
     Indication: CHRONIC MYELOID LEUKAEMIA
     Dosage: 400 MG, Q12H
     Route: 048

REACTIONS (3)
  - Ocular discomfort [Not Recovered/Not Resolved]
  - Visual impairment [Not Recovered/Not Resolved]
  - Ocular hyperaemia [Not Recovered/Not Resolved]
